FAERS Safety Report 4438746-1 (Version None)
Quarter: 2004Q3

REPORT INFORMATION
  Report Type: 
  Country: None (occurrence: None)
  Receive Date: 20040830
  Receipt Date: 20040812
  Transmission Date: 20050211
  Serious: Yes (Disabling)
  Sender: FDA-Public Use
  Company Number: DSA_81007_2004

PATIENT
  Age: 56 Year
  Sex: Male

DRUGS (8)
  1. XYREM [Suspect]
     Indication: NARCOLEPSY
     Dosage: 7.5 G NIGHTLY PO
     Route: 048
     Dates: end: 20040514
  2. XYREM [Suspect]
     Indication: NARCOLEPSY
     Dosage: 9 G NIGHTLY PO
     Route: 048
     Dates: start: 20040514, end: 20040601
  3. REQUIP [Suspect]
     Dosage: DF
  4. PROVIGIL [Concomitant]
  5. MULTI-VITAMIN [Concomitant]
  6. VITAMIN E [Concomitant]
  7. STOOL SOFTNER [Concomitant]
  8. MEGA OIL [Concomitant]

REACTIONS (5)
  - CATAPLEXY [None]
  - CONDITION AGGRAVATED [None]
  - IMPAIRED DRIVING ABILITY [None]
  - NEUROPATHY PERIPHERAL [None]
  - SLEEP DISORDER [None]
